FAERS Safety Report 9438899 (Version 3)
Quarter: 2013Q4

REPORT INFORMATION
  Report Type: Spontaneous
  Country: JP (occurrence: JP)
  Receive Date: 20130802
  Receipt Date: 20131024
  Transmission Date: 20140711
  Serious: Yes (Hospitalization)
  Sender: FDA-Public Use
  Company Number: JP-TEVA-423195USA

PATIENT
  Age: 63 Year
  Sex: Male
  Weight: 68 kg

DRUGS (3)
  1. BENDAMUSTINE [Suspect]
     Indication: SPLENIC MARGINAL ZONE LYMPHOMA
     Route: 042
     Dates: start: 20130501, end: 20130502
  2. BENDAMUSTINE [Suspect]
     Route: 042
     Dates: start: 20130618, end: 20130619
  3. SITAGLIPTIN PHOSPHATE MONOHYDRATE [Concomitant]
     Indication: DIABETES MELLITUS
     Dosage: 50 MILLIGRAM DAILY;
     Dates: start: 20111130, end: 20130709

REACTIONS (1)
  - Hepatitis B [Recovering/Resolving]
